FAERS Safety Report 10291833 (Version 1)
Quarter: 2014Q3

REPORT INFORMATION
  Report Type: Spontaneous
  Country: JP (occurrence: JP)
  Receive Date: 20140710
  Receipt Date: 20140710
  Transmission Date: 20150326
  Serious: Yes (Other)
  Sender: FDA-Public Use
  Company Number: JP-TEVA-492659ISR

PATIENT
  Age: 61 Year
  Sex: Male

DRUGS (7)
  1. LANSOPRAZOLE. [Concomitant]
     Active Substance: LANSOPRAZOLE
     Route: 048
     Dates: start: 20140616, end: 20140702
  2. ARTEMISIA CAPILLARIS FLOWER [Concomitant]
     Dosage: 22.5 GRAM DAILY;
     Route: 048
     Dates: start: 20140616, end: 20140702
  3. THROMBIN [Concomitant]
     Active Substance: THROMBIN
     Dates: start: 20140610, end: 20140625
  4. URSO TABLETS [Concomitant]
     Route: 048
     Dates: start: 20140616, end: 20140702
  5. (TS)RANITIDINE INJECTION SOLUTION 100MG ^TAIYO^, INJ, 2.5%4ML1AMPOULE [Suspect]
     Active Substance: RANITIDINE HYDROCHLORIDE
     Dosage: 200 MILLIGRAM DAILY;
     Route: 041
     Dates: start: 20140604, end: 20140609
  6. OMEPRAZOLE. [Concomitant]
     Active Substance: OMEPRAZOLE
     Dosage: 40 MILLIGRAM DAILY;
     Route: 041
     Dates: start: 20140609, end: 20140616
  7. MAGTECT [Concomitant]
     Route: 048
     Dates: start: 20140610, end: 20140625

REACTIONS (3)
  - Blood pressure decreased [Recovering/Resolving]
  - Melaena [Recovering/Resolving]
  - Haematemesis [Recovering/Resolving]

NARRATIVE: CASE EVENT DATE: 20140609
